FAERS Safety Report 5948062-4 (Version None)
Quarter: 2008Q4

REPORT INFORMATION
  Report Type: 
  Country: None (occurrence: None)
  Receive Date: 20081111
  Receipt Date: 20081008
  Transmission Date: 20090506
  Serious: No
  Sender: FDA-Public Use
  Company Number: US-BAYER-200835267NA

PATIENT
  Age: 95 Year
  Sex: Female

DRUGS (2)
  1. ULTRAVIST (PHARMACY BULK) [Suspect]
     Indication: COMPUTERISED TOMOGRAM ABDOMEN
     Dosage: TOTAL DAILY DOSE: 100 ML
     Dates: start: 20081006, end: 20081006
  2. REDICAT [Concomitant]
     Indication: COMPUTERISED TOMOGRAM ABDOMEN
     Route: 048
     Dates: start: 20081006, end: 20081006

REACTIONS (5)
  - EYE SWELLING [None]
  - INJECTION SITE ERYTHEMA [None]
  - LIP SWELLING [None]
  - OCULAR HYPERAEMIA [None]
  - SNEEZING [None]
